FAERS Safety Report 4908702-5 (Version None)
Quarter: 2006Q1

REPORT INFORMATION
  Report Type: 
  Country: None (occurrence: None)
  Receive Date: 20060210
  Receipt Date: 20051024
  Transmission Date: 20060701
  Serious: No
  Sender: FDA-Public Use
  Company Number: US-GLAXOSMITHKLINE-A0579388A

PATIENT
  Age: 28 Year
  Sex: Male

DRUGS (8)
  1. PAXIL CR [Suspect]
     Indication: PANIC DISORDER
     Dosage: 25MG PER DAY
     Route: 048
  2. PAXIL [Suspect]
     Indication: PANIC DISORDER
     Dosage: 20MG PER DAY
     Route: 048
     Dates: start: 19990101
  3. PAXIL [Suspect]
     Dosage: 20MG PER DAY
     Route: 048
  4. CREATINE MONOHYDRATE [Concomitant]
  5. ETHYL ESTERS OF POLYUNSATURATED FATTY ACIDS [Concomitant]
  6. DIETARY SUPPLEMENT [Concomitant]
  7. PROTEIN SUPPLEMENT [Concomitant]
  8. HEPATITIS B VACCINE [Concomitant]

REACTIONS (7)
  - BALANCE DISORDER [None]
  - BLOOD PRESSURE DECREASED [None]
  - DIZZINESS [None]
  - DRUG INEFFECTIVE [None]
  - DRUG WITHDRAWAL SYNDROME [None]
  - FEELING DRUNK [None]
  - NAUSEA [None]
